FAERS Safety Report 8638691 (Version 3)
Quarter: 2012Q4

REPORT INFORMATION
  Report Type: 
  Country: US (occurrence: US)
  Receive Date: 20120627
  Receipt Date: 20121109
  Transmission Date: 20130627
  Serious: Yes (Other)
  Sender: FDA-Public Use
  Company Number: US-ASTRAZENECA-2012SE40460

PATIENT
  Age: 66 Year
  Sex: Female

DRUGS (2)
  1. NEXIUM [Suspect]
     Route: 048
  2. PRILOSEC [Suspect]
     Route: 048

REACTIONS (7)
  - Oesophageal carcinoma [Unknown]
  - Dyspepsia [Unknown]
  - Regurgitation [Unknown]
  - Adverse event [Unknown]
  - Therapeutic response unexpected [Unknown]
  - Drug effect incomplete [Unknown]
  - Drug dose omission [Unknown]
